FAERS Safety Report 8255008-5 (Version None)
Quarter: 2012Q2

REPORT INFORMATION
  Report Type: 
  Country: None (occurrence: None)
  Receive Date: 20120403
  Receipt Date: 20120322
  Transmission Date: 20120825
  Serious: Yes (Hospitalization)
  Sender: FDA-Public Use
  Company Number: JP-UCBSA-015495

PATIENT
  Age: 66 Year
  Sex: Female
  Weight: 47.8 kg

DRUGS (38)
  1. CERTOLIZUMAB PEGOL [Suspect]
     Route: 058
     Dates: end: 20110413
  2. PREDNISOLONE [Concomitant]
     Dosage: DAILY DOSE: 5MG
     Dates: start: 20110427
  3. THEOPHYLLINE [Concomitant]
     Dosage: DAILY DOSE: 200 MG
     Dates: start: 20110427
  4. SODIUM AZULENE SULFONATE L-GLUTAMINE [Concomitant]
     Dosage: DAILY DOSE: 0.67 G
     Dates: start: 20060613, end: 20110425
  5. SODIUM RISEDRONATE HYDRATE [Concomitant]
     Dosage: ONE POINT SUSPENSION OF THE ADMINISTRATION
     Dates: start: 20081020, end: 20110422
  6. SODIUM RISEDRONATE HYDRATE [Concomitant]
     Dates: start: 20110513
  7. SENNOSIDE [Concomitant]
     Dosage: DAILY DOSE: 12MG
     Dates: start: 20060613, end: 20110301
  8. SENNOSIDE [Concomitant]
     Dates: start: 20110928
  9. SULFASALAZINE [Concomitant]
     Dosage: DAILY DOSE:  1000 MG
     Dates: start: 20081020, end: 20110425
  10. AURANOFIN [Concomitant]
     Dosage: DAILY DOSE: 6MG
     Dates: start: 20070402, end: 20101012
  11. BUCILLAMINE [Concomitant]
     Dosage: DAILY DOSE: 200MG
     Dates: start: 20070625, end: 20100803
  12. ATORVASTATIN CALCIUM [Concomitant]
     Dosage: DAILY DOSE: 10MG
     Dates: start: 20110427
  13. SODIUM AZULENE SULFONATE L-GLUTAMINE [Concomitant]
     Dosage: DAILY DOSE: 0.67G
     Dates: start: 20110427
  14. AMPHOTERICIN B [Concomitant]
     Dosage: DAILY DOSE: 300MG
     Dates: start: 20110427
  15. DICLOFENAC SODIUM [Concomitant]
     Dosage: ADEQUATE DOSE
     Dates: start: 20111221
  16. CERTOLIZUMAB PEGOL [Suspect]
     Route: 058
     Dates: start: 20091210, end: 20100707
  17. CERTOLIZUMAB PEGOL [Suspect]
     Route: 058
     Dates: start: 20110510
  18. PREDNISOLONE [Concomitant]
     Dosage: DAILY DOSE:  5MG
     Dates: start: 20060613, end: 20110425
  19. SENNOSIDE [Concomitant]
     Dosage: DAILY DOSE: 24MG AS NEEDED
     Dates: start: 20110302, end: 20110927
  20. DIFLUCORTOLONE VALERATE [Concomitant]
     Dosage: ADEQUATE DOSE
     Dates: start: 20110330
  21. OLOPATADINE HCL [Concomitant]
     Dosage: DAILY DOSE: 10MG
     Dates: start: 20100617, end: 20100625
  22. TERBINAFINE HCL [Concomitant]
     Dosage: DAILY DOSE: 125MG
     Dates: start: 20101111, end: 20110329
  23. SULFASALAZINE [Concomitant]
     Dosage: DAILY DOSE: 1000 MG
     Dates: start: 20110502
  24. LIRANAFTATE [Concomitant]
     Dosage: ADEQUATE DOSE
     Dates: start: 20110330
  25. SULFAMETHOXAZOLE AND TRIMETHOPRIM [Concomitant]
     Dosage: 4 TABLETS / WEEK
     Dates: start: 20110217
  26. CERTOLIZUMAB PEGOL [Suspect]
     Indication: RHEUMATOID ARTHRITIS
     Route: 058
     Dates: start: 20090825, end: 20091202
  27. LOXOPROFEN SODIUM [Concomitant]
     Dosage: ADEQUATE DOSE
     Dates: start: 20100414
  28. ISONIAZID [Concomitant]
     Dosage: DAILY DOSE: 300MG
     Dates: start: 20110427
  29. THEOPHYLLINE [Concomitant]
     Dosage: DAILY DOSE: 200MG
     Dates: start: 20060101, end: 20110425
  30. LIRANAFTATE [Concomitant]
     Dosage: ADEQUATE DOSE
     Dates: start: 20100823, end: 20110329
  31. PREDNISOLONE [Concomitant]
     Dosage: DAILY DOSE: 1MG
     Dates: start: 20100527, end: 20100721
  32. FAMOTIDINE [Concomitant]
     Dosage: DAILY DOSE: 40MG
     Dates: start: 20081020, end: 20110425
  33. ATORVASTATIN CALCIUM [Concomitant]
     Dosage: DAILY DOSE: 10MG
     Dates: start: 20100203, end: 20110425
  34. DIFLUCORTOLONE VALERATE [Concomitant]
     Dosage: ADEQUATE DOSE
     Dates: start: 20100617, end: 20100625
  35. FAMOTIDINE [Concomitant]
     Dates: start: 20110427
  36. ISONIAZID [Concomitant]
     Dosage: DAILY DOSE: 300MG
     Dates: start: 20090803, end: 20110425
  37. AMPHOTERICIN B [Concomitant]
     Dosage: DAILY DOSE: 300MG
     Dates: start: 20100623, end: 20110425
  38. VIDARABINE [Concomitant]
     Dosage: ADEQUATE DOSE
     Dates: start: 20100804, end: 20110329

REACTIONS (3)
  - DIZZINESS POSTURAL [None]
  - DERMAL CYST [None]
  - COLONIC POLYP [None]
